FAERS Safety Report 4831664-6 (Version None)
Quarter: 2005Q4

REPORT INFORMATION
  Report Type: 
  Country: None (occurrence: None)
  Receive Date: 20051116
  Receipt Date: 20051104
  Transmission Date: 20060501
  Serious: Yes (Other)
  Sender: FDA-Public Use
  Company Number: 2005109246

PATIENT
  Age: 58 Year
  Sex: Male
  Weight: 104 kg

DRUGS (7)
  1. LYRICA [Suspect]
     Indication: NEURALGIA
     Dosage: 450 MG (3 IN 1 D), ORAL
     Route: 048
     Dates: start: 20050626, end: 20050701
  2. FENTANYL [Concomitant]
  3. AMITRIPTYLINE HCL [Concomitant]
  4. ACETAMINOPHEN [Concomitant]
  5. METFORMIN HCL [Concomitant]
  6. IRBESARTAN [Concomitant]
  7. BARNIDIPINE (BARNIDIPINE) [Concomitant]

REACTIONS (4)
  - OEDEMA PERIPHERAL [None]
  - PITTING OEDEMA [None]
  - URINE OUTPUT DECREASED [None]
  - WEIGHT INCREASED [None]
